FAERS Safety Report 8509588-2 (Version None)
Quarter: 2012Q3

REPORT INFORMATION
  Report Type: 
  Country: None (occurrence: None)
  Receive Date: 20120713
  Receipt Date: 20120704
  Transmission Date: 20120928
  Serious: No
  Sender: FDA-Public Use
  Company Number: CA-JNJFOC-20120702563

PATIENT
  Sex: Male
  Weight: 69.9 kg

DRUGS (8)
  1. IRON [Concomitant]
     Route: 065
  2. LUMIGAN [Concomitant]
     Route: 065
  3. VITAMIN B-12 [Concomitant]
     Route: 050
  4. ADVAIR DISKUS 100/50 [Concomitant]
     Route: 065
  5. FOSAMAX [Concomitant]
     Route: 065
  6. REMICADE [Suspect]
     Indication: CROHN'S DISEASE
     Route: 042
     Dates: start: 20110605
  7. SYNTHROID [Concomitant]
     Route: 065
  8. PREDNISONE [Concomitant]
     Route: 065

REACTIONS (1)
  - HERPES ZOSTER [None]
